FAERS Safety Report 19436055 (Version 3)
Quarter: 2021Q3

REPORT INFORMATION
  Report Type: Spontaneous
  Country: US (occurrence: US)
  Receive Date: 20210618
  Receipt Date: 20210830
  Transmission Date: 20211014
  Serious: Yes (Other)
  Sender: FDA-Public Use
  Company Number: US-VIFOR (INTERNATIONAL) INC.-VIT-2021-05196

PATIENT
  Age: 49 Year
  Sex: Male
  Weight: 129.5 kg

DRUGS (18)
  1. OMEPRAZOLE. [Concomitant]
     Active Substance: OMEPRAZOLE
     Route: 048
  2. TRAZODONE [Concomitant]
     Active Substance: TRAZODONE HYDROCHLORIDE
     Indication: INSOMNIA
     Route: 048
  3. ZOFRAN [Concomitant]
     Active Substance: ONDANSETRON HYDROCHLORIDE
     Indication: VOMITING
     Route: 048
  4. MIRCERA [Suspect]
     Active Substance: METHOXY POLYETHYLENE GLYCOL-EPOETIN BETA
     Indication: NEPHROGENIC ANAEMIA
     Route: 040
     Dates: start: 20210225, end: 20210429
  5. ASPIRIN. [Concomitant]
     Active Substance: ASPIRIN
     Route: 048
  6. GABAPENTIN. [Concomitant]
     Active Substance: GABAPENTIN
     Indication: NEUROPATHY PERIPHERAL
     Route: 048
  7. HYDROXYZINE HCL [Concomitant]
     Active Substance: HYDROXYZINE HYDROCHLORIDE
     Route: 048
  8. LISINOPRIL. [Concomitant]
     Active Substance: LISINOPRIL
     Route: 048
  9. ONDANSETRON HCL [Concomitant]
     Active Substance: ONDANSETRON HYDROCHLORIDE
     Indication: NAUSEA
     Route: 048
  10. RAMERON [Concomitant]
     Dosage: 1/2 TABLET
     Route: 048
  11. REGLAN [Concomitant]
     Active Substance: METOCLOPRAMIDE HYDROCHLORIDE
     Indication: NAUSEA
     Route: 048
  12. BUMETANIDE. [Concomitant]
     Active Substance: BUMETANIDE
     Route: 048
  13. SERTRALINE [Concomitant]
     Active Substance: SERTRALINE HYDROCHLORIDE
     Dosage: 1.5 TABLET
     Route: 048
  14. TRESIBA [Concomitant]
     Active Substance: INSULIN DEGLUDEC
     Route: 058
  15. ATORVASTATIN [Concomitant]
     Active Substance: ATORVASTATIN
     Route: 048
  16. BUSPIRONE [Concomitant]
     Active Substance: BUSPIRONE HYDROCHLORIDE
     Route: 048
  17. CARVEDILOL. [Concomitant]
     Active Substance: CARVEDILOL
     Indication: CENTRAL VENOUS PRESSURE
     Route: 048
  18. ZOFRAN [Concomitant]
     Active Substance: ONDANSETRON HYDROCHLORIDE
     Indication: NAUSEA

REACTIONS (6)
  - Drug hypersensitivity [Recovered/Resolved]
  - Chest pain [Recovered/Resolved]
  - Hypersensitivity [Recovered/Resolved]
  - Headache [Recovered/Resolved]
  - Feeling abnormal [Recovered/Resolved]
  - Nausea [Recovered/Resolved]

NARRATIVE: CASE EVENT DATE: 20210415
